FAERS Safety Report 6983591-6 (Version None)
Quarter: 2010Q3

REPORT INFORMATION
  Report Type: 
  Country: None (occurrence: None)
  Receive Date: 20100914
  Receipt Date: 20081020
  Transmission Date: 20110219
  Serious: No
  Sender: FDA-Public Use
  Company Number: US-WYE-H06125208

PATIENT
  Age: 88 Year
  Sex: Male
  Weight: 70.37 kg

DRUGS (7)
  1. ADVIL LIQUI-GELS [Suspect]
     Indication: PAIN IN EXTREMITY
     Dosage: 1 OR 2 CAPLETS, FREQUENCY UNKNOWN
     Route: 048
     Dates: start: 20080901, end: 20080901
  2. ADVIL LIQUI-GELS [Suspect]
     Dosage: 3 CAPLETS EVERY THREE HOURS TWICE PER DAY, NOT ADVISED BY PHYSICIAN
     Route: 048
     Dates: start: 20080919
  3. OSCAL [Concomitant]
  4. TYLENOL [Concomitant]
  5. MULTI-VITAMINS [Concomitant]
  6. DILANTIN [Concomitant]
  7. PLAVIX [Concomitant]

REACTIONS (2)
  - DRUG ADMINISTRATION ERROR [None]
  - DRUG EFFECT DECREASED [None]
